FAERS Safety Report 5389268-5 (Version None)
Quarter: 2007Q3

REPORT INFORMATION
  Report Type: 
  Country: None (occurrence: None)
  Receive Date: 20070717
  Receipt Date: 20070709
  Transmission Date: 20080115
  Serious: Yes (Other)
  Sender: FDA-Public Use
  Company Number: D0053900A

PATIENT
  Age: 26 Year
  Sex: Female

DRUGS (3)
  1. LAMICTAL [Suspect]
     Dosage: 200MG PER DAY
     Route: 048
     Dates: start: 20030101, end: 20060101
  2. CONTRACEPTIVE [Concomitant]
     Indication: CONTRACEPTION
     Route: 062
     Dates: end: 20050201
  3. NEURONTIN [Concomitant]
     Dosage: 900MG PER DAY
     Route: 048
     Dates: end: 20030101

REACTIONS (4)
  - AMENORRHOEA [None]
  - DEPRESSED MOOD [None]
  - DEPRESSION [None]
  - OESTROGEN DEFICIENCY [None]
